FAERS Safety Report 13384433 (Version 1)
Quarter: 2017Q1

REPORT INFORMATION
  Report Type: Spontaneous
  Country: US (occurrence: US)
  Receive Date: 20170329
  Receipt Date: 20170329
  Transmission Date: 20170429
  Serious: No
  Sender: FDA-Public Use
  Company Number: US-ALLERGAN-1653242US

PATIENT
  Age: 75 Year
  Sex: Male

DRUGS (1)
  1. NORCO [Suspect]
     Active Substance: ACETAMINOPHEN\HYDROCODONE BITARTRATE
     Indication: PAIN
     Dosage: UNK, BID

REACTIONS (5)
  - Wrong technique in product usage process [Unknown]
  - Nausea [Unknown]
  - Vomiting [Unknown]
  - Gastrointestinal inflammation [Unknown]
  - Oesophageal pain [Unknown]
